FAERS Safety Report 8134571-9 (Version None)
Quarter: 2012Q1

REPORT INFORMATION
  Report Type: 
  Country: None (occurrence: None)
  Receive Date: 20120214
  Receipt Date: 20120209
  Transmission Date: 20120608
  Serious: No
  Sender: FDA-Public Use
  Company Number: US-PFIZER INC-2010035657

PATIENT
  Sex: Female

DRUGS (5)
  1. PRAVASTATIN [Concomitant]
     Dosage: 40 UNK, UNK
  2. LYRICA [Suspect]
     Dosage: 75 MG, 2X/DAY
     Route: 048
  3. CALCIUM [Concomitant]
     Dosage: UNK
  4. TRAZODONE [Concomitant]
     Dosage: 75 MG, UNK
  5. MIRALAX [Concomitant]
     Dosage: UNK

REACTIONS (3)
  - INSOMNIA [None]
  - DEPRESSION [None]
  - WEIGHT DECREASED [None]
